FAERS Safety Report 8290943 (Version 3)
Quarter: 2013Q2

REPORT INFORMATION
  Report Type: Spontaneous
  Country: US (occurrence: None)
  Receive Date: 20111122
  Receipt Date: 20120426
  Transmission Date: 20140414
  Serious: No
  Sender: FDA-Public Use
  Company Number: PHEH2011US02028

PATIENT
  Age: 53 Year
  Sex: Female

DRUGS (2)
  1. GILENYA [Suspect]
     Indication: MULTIPLE SCLEROSIS
     Dosage: 0.5MG, DAILY, ORAL
     Route: 048
     Dates: start: 20110805
  2. CYMBALTA (DULOXETINE HYDROCHLORIDE) [Suspect]

REACTIONS (3)
  - VITREOUS FLOATERS [None]
  - HYPERHIDROSIS [None]
  - EYE PAIN [None]
